FAERS Safety Report 11277846 (Version 2)
Quarter: 2015Q3

REPORT INFORMATION
  Report Type: Spontaneous
  Country: US (occurrence: US)
  Receive Date: 20150716
  Receipt Date: 20150720
  Transmission Date: 20151125
  Serious: Yes (Other)
  Sender: FDA-Public Use
  Company Number: US-GILEAD-2015-0162996

PATIENT
  Sex: Female

DRUGS (1)
  1. HARVONI [Suspect]
     Active Substance: LEDIPASVIR\SOFOSBUVIR
     Indication: LIVER DISORDER
     Dosage: UNK
     Route: 065
     Dates: start: 201505

REACTIONS (3)
  - Hepatic enzyme increased [Unknown]
  - Hepatitis C virus test positive [Unknown]
  - Drug ineffective [Unknown]
